FAERS Safety Report 10008651 (Version 5)
Quarter: 2014Q2

REPORT INFORMATION
  Report Type: Report from Study
  Country: US (occurrence: US)
  Receive Date: 20140313
  Receipt Date: 20140428
  Transmission Date: 20141212
  Serious: Yes (Death, Hospitalization)
  Sender: FDA-Public Use
  Company Number: US-ACTELION-A-US2014-96002

PATIENT
  Age: 78 Year
  Sex: Female

DRUGS (10)
  1. VENTAVIS [Suspect]
     Indication: PULMONARY ARTERIAL HYPERTENSION
     Dosage: 5 MCG, 4-5X/DAY
     Route: 055
     Dates: start: 201209
  2. BYSTOLIC [Concomitant]
     Dosage: 10 MG, QD
  3. CITALOPRAM [Concomitant]
     Dosage: 40 MG, QD
  4. DEXILANT [Concomitant]
     Dosage: 60 MG, UNK
  5. DILTIAZEM [Concomitant]
     Dosage: 180 MG, UNK
  6. FLOVENT HFA [Concomitant]
     Dosage: 220 MCG, BID
  7. LASIX [Concomitant]
     Dosage: 40 MG, QD
  8. SPIRONOLACTONE [Concomitant]
     Dosage: 25 MG, UNK
  9. SPIRIVA HANDIHALER [Concomitant]
     Dosage: 18 UNK, UNK
  10. WARFARIN [Concomitant]
     Dosage: 5 MG, UNK

REACTIONS (5)
  - Death [Fatal]
  - Cardiac disorder [Unknown]
  - Lung disorder [Unknown]
  - Stress [Unknown]
  - Dyspnoea [Recovered/Resolved]
